FAERS Safety Report 9540968 (Version 2)
Quarter: 2013Q3

REPORT INFORMATION
  Report Type: Report from Study
  Country: CA (occurrence: CA)
  Receive Date: 20130922
  Receipt Date: 20130930
  Transmission Date: 20140515
  Serious: Yes (Hospitalization)
  Sender: FDA-Public Use
  Company Number: CA-US-EMD SERONO, INC.-7237410

PATIENT
  Age: 59 Year
  Sex: Male
  Weight: 102 kg

DRUGS (6)
  1. REBIF [Suspect]
     Indication: PRODUCT USED FOR UNKNOWN INDICATION
     Route: 058
     Dates: start: 20110421, end: 20121123
  2. REBIF [Suspect]
     Dates: start: 20130102
  3. ADVAIR [Concomitant]
     Indication: CHRONIC OBSTRUCTIVE PULMONARY DISEASE
     Dates: start: 201001
  4. SPIRIVA [Concomitant]
     Indication: CHRONIC OBSTRUCTIVE PULMONARY DISEASE
     Dates: start: 201001
  5. WELLBUTRIN                         /00700501/ [Concomitant]
     Indication: DEPRESSION
     Route: 048
     Dates: start: 20120102, end: 20120404
  6. OXYCOCET [Concomitant]
     Indication: ARTHRALGIA
     Route: 048
     Dates: start: 20110404, end: 20130109

REACTIONS (3)
  - Osteonecrosis [Recovered/Resolved]
  - Osteoarthritis [Recovered/Resolved]
  - Staphylococcal infection [Recovered/Resolved]
